FAERS Safety Report 20232540 (Version 1)
Quarter: 2021Q4

REPORT INFORMATION
  Report Type: Spontaneous
  Country: US (occurrence: None)
  Receive Date: 20211222
  Receipt Date: 20211222
  Transmission Date: 20220303
  Serious: Yes (Other)
  Sender: FDA-Public Use
  Company Number: None

PATIENT
  Age: 55 Year
  Sex: Female
  Weight: 131.54 kg

DRUGS (7)
  1. NADOLOL [Suspect]
     Active Substance: NADOLOL
     Indication: Heart rate increased
     Dosage: FREQUENCY : DAILY;?
     Route: 048
  2. NADOLOL [Suspect]
     Active Substance: NADOLOL
     Indication: Palpitations
  3. KLONOPIN [Concomitant]
     Active Substance: CLONAZEPAM
  4. LEVOTHYROXINE [Concomitant]
     Active Substance: LEVOTHYROXINE
  5. TYLENOL [Concomitant]
     Active Substance: ACETAMINOPHEN
  6. MOTRIN [Concomitant]
     Active Substance: IBUPROFEN
  7. VITAMINS [Concomitant]
     Active Substance: VITAMINS

REACTIONS (4)
  - Drug ineffective [None]
  - Heart rate increased [None]
  - Palpitations [None]
  - Condition aggravated [None]
